FAERS Safety Report 5374941-5 (Version None)
Quarter: 2007Q2

REPORT INFORMATION
  Report Type: 
  Country: None (occurrence: None)
  Receive Date: 20070629
  Receipt Date: 20070619
  Transmission Date: 20071010
  Serious: Yes (Other)
  Sender: FDA-Public Use
  Company Number: GB-GILEAD-2006-0010698

PATIENT
  Sex: Female

DRUGS (2)
  1. TRUVADA [Suspect]
     Dates: start: 20050201, end: 20061109
  2. EFAVIRENZ [Concomitant]
     Dates: start: 20050201

REACTIONS (4)
  - FOCAL GLOMERULOSCLEROSIS [None]
  - GLOMERULONEPHRITIS PROLIFERATIVE [None]
  - RENAL FAILURE [None]
  - SYSTEMIC LUPUS ERYTHEMATOSUS [None]
